FAERS Safety Report 17353031 (Version 2)
Quarter: 2020Q1

REPORT INFORMATION
  Report Type: Spontaneous
  Country: HU (occurrence: HU)
  Receive Date: 20200131
  Receipt Date: 20200220
  Transmission Date: 20200409
  Serious: Yes (Life-Threatening, Other)
  Sender: FDA-Public Use
  Company Number: HU-TEVA-2020-HU-1176042

PATIENT
  Sex: Male

DRUGS (3)
  1. DIAPHYLLIN [Concomitant]
     Active Substance: AMINOPHYLLINE
     Indication: DYSPNOEA
     Route: 065
  2. MORPHINE [Suspect]
     Active Substance: MORPHINE
     Indication: OBSTRUCTIVE AIRWAYS DISORDER
  3. MORPHINE [Suspect]
     Active Substance: MORPHINE
     Indication: DYSPNOEA
     Route: 065

REACTIONS (3)
  - Communication disorder [Recovered/Resolved]
  - Near death experience [Recovered/Resolved]
  - Product use issue [Unknown]
